FAERS Safety Report 13649632 (Version 4)
Quarter: 2020Q3

REPORT INFORMATION
  Report Type: Spontaneous
  Country: PT (occurrence: PT)
  Receive Date: 20170614
  Receipt Date: 20171030
  Transmission Date: 20201104
  Serious: Yes (Other)
  Sender: FDA-Public Use
  Company Number: PT-ROCHE-1946629

PATIENT
  Sex: Male

DRUGS (5)
  1. RITUXAN [Suspect]
     Active Substance: RITUXIMAB
     Indication: PRODUCT USED FOR UNKNOWN INDICATION
     Dosage: DID RITUXIMAB 21/APR/2017
     Route: 042
     Dates: start: 2017
  2. RITUXAN [Suspect]
     Active Substance: RITUXIMAB
     Dosage: 500MG + 500MG WITH 15 DAYS INTERVAL
     Route: 042
     Dates: start: 20170505
  3. FINGOLIMOD. [Suspect]
     Active Substance: FINGOLIMOD
     Indication: MULTIPLE SCLEROSIS
     Route: 065
  4. RITUXAN [Suspect]
     Active Substance: RITUXIMAB
     Route: 042
     Dates: start: 20170421
  5. TYSABRI [Suspect]
     Active Substance: NATALIZUMAB
     Indication: RELAPSING-REMITTING MULTIPLE SCLEROSIS
     Route: 065
     Dates: start: 2008

REACTIONS (9)
  - Progressive multifocal leukoencephalopathy [Unknown]
  - Intentional product use issue [Unknown]
  - Off label use [Unknown]
  - Nervous system disorder [Unknown]
  - Bladder dysfunction [Unknown]
  - Headache [Unknown]
  - JC polyomavirus test positive [Unknown]
  - Multiple sclerosis relapse [Unknown]
  - Fibromyalgia [Unknown]
